FAERS Safety Report 8483864-4 (Version None)
Quarter: 2012Q3

REPORT INFORMATION
  Report Type: 
  Country: None (occurrence: None)
  Receive Date: 20120703
  Receipt Date: 20120622
  Transmission Date: 20120928
  Serious: Yes (Other)
  Sender: FDA-Public Use
  Company Number: US-AMGEN-USASP2012033555

PATIENT
  Age: 55 Year
  Sex: Male

DRUGS (13)
  1. ARANESP [Suspect]
     Indication: ANAEMIA
     Dosage: 25 MUG, UNK
     Route: 058
     Dates: start: 20120330
  2. RALTEGRAVIR [Concomitant]
  3. RITONAVIR [Concomitant]
  4. GANCICLOVIR [Concomitant]
     Dates: end: 20120413
  5. DARUNAVIR HYDRATE [Concomitant]
  6. AZITHROMYCIN [Concomitant]
  7. TRUVADA [Concomitant]
  8. MOXIFLOXACIN [Concomitant]
  9. VALGANCICLOVIR [Concomitant]
  10. ETHAMBUTOL HYDROCHLORIDE [Concomitant]
  11. RIFABUTIN [Concomitant]
     Dates: start: 20100525
  12. SULFAMETHOXAZOLE AND TRIMETHOPRIM [Concomitant]
     Dates: end: 20120420
  13. AZT [Concomitant]
     Dates: end: 20120411

REACTIONS (2)
  - APLASIA PURE RED CELL [None]
  - DRUG INEFFECTIVE [None]
